FAERS Safety Report 19845763 (Version 1)
Quarter: 2021Q3

REPORT INFORMATION
  Report Type: Report from Study
  Country: ES (occurrence: ES)
  Receive Date: 20210917
  Receipt Date: 20210917
  Transmission Date: 20211014
  Serious: Yes (Other)
  Sender: FDA-Public Use
  Company Number: ES-GLAXOSMITHKLINE-ES2021GSK193583

PATIENT
  Age: 58 Year
  Sex: Female
  Weight: 77 kg

DRUGS (17)
  1. BLINDED DOXORUBICIN [Suspect]
     Active Substance: DOXORUBICIN
     Dosage: 840 MG
     Dates: start: 20210709, end: 20210709
  2. BLINDED NIRAPARIB [Suspect]
     Active Substance: NIRAPARIB
     Dosage: 840 MG
     Dates: start: 20210709, end: 20210709
  3. BLINDED ATEZOLIZUMAB [Suspect]
     Active Substance: ATEZOLIZUMAB
     Indication: OVARIAN EPITHELIAL CANCER
     Dosage: 840 MG
     Dates: start: 20191205, end: 20191205
  4. PLACEBO [Suspect]
     Active Substance: UNSPECIFIED INGREDIENT
     Indication: OVARIAN EPITHELIAL CANCER
     Dosage: 840 MG
     Dates: start: 20191205, end: 20191205
  5. PLACEBO [Suspect]
     Active Substance: UNSPECIFIED INGREDIENT
     Dosage: 840 MG
     Dates: start: 20210709, end: 20210709
  6. CARBOPLATIN. [Suspect]
     Active Substance: CARBOPLATIN
     Indication: OVARIAN EPITHELIAL CANCER
     Dosage: 5 AUC
     Route: 042
     Dates: start: 20191205, end: 20191205
  7. BLINDED DOXORUBICIN [Suspect]
     Active Substance: DOXORUBICIN
     Indication: OVARIAN EPITHELIAL CANCER
     Dosage: 840 MG
     Dates: start: 20191205, end: 20191205
  8. BLINDED NIRAPARIB [Suspect]
     Active Substance: NIRAPARIB
     Indication: OVARIAN EPITHELIAL CANCER
     Dosage: 840 MG
     Dates: start: 20191205, end: 20191205
  9. CAELYX [Suspect]
     Active Substance: DOXORUBICIN HYDROCHLORIDE
     Indication: OVARIAN EPITHELIAL CANCER
     Dosage: 30 MG/M2
     Route: 042
     Dates: start: 20191205, end: 20191205
  10. CAELYX [Suspect]
     Active Substance: DOXORUBICIN HYDROCHLORIDE
     Dosage: 30 MG/M2
     Route: 042
     Dates: start: 20200430, end: 20200430
  11. BLINDED ATEZOLIZUMAB [Suspect]
     Active Substance: ATEZOLIZUMAB
     Dosage: 840 MG
     Dates: start: 20210709, end: 20210709
  12. BLINDED ATEZOLIZUMAB [Suspect]
     Active Substance: ATEZOLIZUMAB
     Indication: OVARIAN EPITHELIAL CANCER
     Dosage: 200 MG, QD
     Route: 048
     Dates: start: 20200529, end: 20210709
  13. BLINDED NIRAPARIB [Suspect]
     Active Substance: NIRAPARIB
     Indication: OVARIAN EPITHELIAL CANCER
     Dosage: 200 MG, QD
     Route: 048
     Dates: start: 20200529, end: 20210709
  14. NOLOTIL [Concomitant]
     Indication: PAIN
     Dosage: 575 MG
     Route: 048
     Dates: start: 20210909
  15. PLACEBO [Suspect]
     Active Substance: UNSPECIFIED INGREDIENT
     Indication: OVARIAN EPITHELIAL CANCER
     Dosage: 200 MG, QD
     Route: 048
     Dates: start: 20200529, end: 20210709
  16. BLINDED DOXORUBICIN [Suspect]
     Active Substance: DOXORUBICIN
     Indication: OVARIAN EPITHELIAL CANCER
     Dosage: 200 MG, QD
     Route: 048
     Dates: start: 20200529, end: 20210709
  17. CARBOPLATIN. [Suspect]
     Active Substance: CARBOPLATIN
     Dosage: 5 AUC
     Route: 042
     Dates: start: 20200430, end: 20200430

REACTIONS (2)
  - Vitiligo [Not Recovered/Not Resolved]
  - Thrombocytopenia [Not Recovered/Not Resolved]

NARRATIVE: CASE EVENT DATE: 20210909
